FAERS Safety Report 9350827 (Version 1)
Quarter: 2013Q2

REPORT INFORMATION
  Report Type: Spontaneous
  Country: US (occurrence: US)
  Receive Date: 20130617
  Receipt Date: 20130617
  Transmission Date: 20140414
  Serious: Yes (Other)
  Sender: FDA-Public Use
  Company Number: US-JNJFOC-20130607052

PATIENT
  Age: 6 Year
  Sex: Female

DRUGS (2)
  1. SUDAFED [Suspect]
     Indication: NASOPHARYNGITIS
     Route: 065
  2. SUDAFED [Suspect]
     Indication: MALAISE
     Route: 065

REACTIONS (3)
  - Convulsion [Recovered/Resolved]
  - Convulsive threshold lowered [None]
  - Febrile convulsion [None]
